FAERS Safety Report 12343311 (Version 3)
Quarter: 2016Q2

REPORT INFORMATION
  Report Type: Spontaneous
  Country: US (occurrence: US)
  Receive Date: 20160506
  Receipt Date: 20160602
  Transmission Date: 20160815
  Serious: Yes (Other)
  Sender: FDA-Public Use
  Company Number: US-FRESENIUS KABI-FK201602504

PATIENT
  Age: 84 Year
  Sex: Female
  Weight: 79.45 kg

DRUGS (1)
  1. XYLOCAINE-MPF [Suspect]
     Active Substance: LIDOCAINE HYDROCHLORIDE
     Indication: SEDATION
     Route: 065
     Dates: start: 20160414

REACTIONS (3)
  - Visual acuity reduced [Not Recovered/Not Resolved]
  - Post procedural infection [Recovered/Resolved]
  - Eye infection [Recovered/Resolved]

NARRATIVE: CASE EVENT DATE: 20160416
